FAERS Safety Report 5147685-2 (Version None)
Quarter: 2006Q4

REPORT INFORMATION
  Report Type: 
  Country: None (occurrence: None)
  Receive Date: 20061108
  Receipt Date: 20061108
  Transmission Date: 20070319
  Serious: Yes (Disabling)
  Sender: FDA-Public Use
  Company Number: None

PATIENT
  Age: 33 Year
  Sex: Male
  Weight: 72.5755 kg

DRUGS (2)
  1. HYDROCODONE BITARTRATE + ACETAMINOPHEN [Suspect]
     Indication: PAIN MANAGEMENT
     Dosage: 1-2 TABLETS/ 4-6 HO   PO
     Route: 048
     Dates: start: 20061101, end: 20061102
  2. HYDROCODONE BITARTRATE + ACETAMINOPHEN [Suspect]
     Indication: VARICOCELE REPAIR
     Dosage: 1-2 TABLETS/ 4-6 HO   PO
     Route: 048
     Dates: start: 20061101, end: 20061102

REACTIONS (4)
  - CONVULSION [None]
  - DEPRESSION [None]
  - SUICIDAL IDEATION [None]
  - SYNCOPE [None]
